FAERS Safety Report 20182982 (Version 1)
Quarter: 2021Q4

REPORT INFORMATION
  Report Type: Spontaneous
  Country: TR (occurrence: TR)
  Receive Date: 20211214
  Receipt Date: 20211214
  Transmission Date: 20220303
  Serious: Yes (Hospitalization)
  Sender: FDA-Public Use
  Company Number: TR-PFIZER INC-202101336972

PATIENT
  Age: 56 Year
  Sex: Female

DRUGS (4)
  1. XANAX [Suspect]
     Active Substance: ALPRAZOLAM
     Dosage: UNK
  2. XANAX [Suspect]
     Active Substance: ALPRAZOLAM
     Dosage: UNK
  3. XANAX [Suspect]
     Active Substance: ALPRAZOLAM
     Dosage: UNK
  4. XANAX [Suspect]
     Active Substance: ALPRAZOLAM
     Dosage: UNK

REACTIONS (6)
  - Myocardial infarction [Unknown]
  - Diarrhoea [Unknown]
  - Drug ineffective [Unknown]
  - Dyspnoea [Unknown]
  - Hypoaesthesia [Unknown]
  - Nervousness [Unknown]
